FAERS Safety Report 9040702 (Version 1)
Quarter: 2013Q1

REPORT INFORMATION
  Report Type: Report from Study
  Country: US (occurrence: US)
  Receive Date: 20130129
  Receipt Date: 20130129
  Transmission Date: 20140127
  Serious: No
  Sender: FDA-Public Use
  Company Number: US-ABBOTT-12P-163-0889497-00

PATIENT
  Age: 15 Year
  Sex: Male
  Weight: 40.86 kg

DRUGS (5)
  1. HUMIRA 40 MG/0.8 ML PEN [Suspect]
     Indication: CROHN^S DISEASE
     Dosage: GIVE 80 MG ON DAY ONE.
     Dates: start: 20111222, end: 20111222
  2. HUMIRA 40 MG/0.8 ML PEN [Suspect]
     Dosage: GIVE 40 MG ON DAY TWO.
     Dates: start: 20111223, end: 20111223
  3. HUMIRA 40 MG/0.8 ML PEN [Suspect]
     Dates: start: 201201
  4. HUMIRA 40 MG/0.8 ML PEN [Suspect]
     Dosage: GIVE 80 MG ON DAY 15.
     Dates: start: 20120104, end: 20120104
  5. GROWTH HORMONE INJECTION [Concomitant]
     Indication: PRODUCT USED FOR UNKNOWN INDICATION

REACTIONS (2)
  - Incorrect dose administered [Not Recovered/Not Resolved]
  - Off label use [Unknown]
